FAERS Safety Report 4409714-0 (Version None)
Quarter: 2004Q3

REPORT INFORMATION
  Report Type: 
  Country: None (occurrence: None)
  Receive Date: 20040727
  Receipt Date: 20040727
  Transmission Date: 20050211
  Serious: Yes (Other)
  Sender: FDA-Public Use
  Company Number: None

PATIENT
  Age: 2 Year
  Sex: Male

DRUGS (2)
  1. CEFOTAXIME [Suspect]
     Indication: BRAIN ABSCESS
     Dosage: 750 MG IV Q 8 HOURS
     Route: 042
     Dates: start: 20040707, end: 20040723
  2. CEFOTAXIME [Suspect]

REACTIONS (1)
  - NEUTROPENIA [None]
